FAERS Safety Report 9062030 (Version 1)
Quarter: 2013Q1

REPORT INFORMATION
  Report Type: Spontaneous
  Country: US (occurrence: US)
  Receive Date: 20130127
  Receipt Date: 20130127
  Transmission Date: 20140127
  Serious: No
  Sender: FDA-Public Use
  Company Number: US-ASTRAZENECA-2013SE03958

PATIENT
  Age: 76 Year
  Sex: Male
  Weight: 88.5 kg

DRUGS (5)
  1. NEXIUM [Suspect]
     Indication: GASTROOESOPHAGEAL REFLUX DISEASE
     Route: 048
     Dates: start: 201212, end: 201212
  2. NEXIUM [Suspect]
     Indication: GASTROOESOPHAGEAL REFLUX DISEASE
     Route: 048
     Dates: start: 20121214
  3. LISINOPRIL [Suspect]
     Route: 048
  4. TOPROL XL [Suspect]
     Route: 048
  5. LOVASTATIN [Concomitant]

REACTIONS (3)
  - Stomach mass [Unknown]
  - Gastrointestinal mucosal disorder [Unknown]
  - Abdominal pain upper [Recovering/Resolving]
